FAERS Safety Report 6743732-2 (Version None)
Quarter: 2010Q2

REPORT INFORMATION
  Report Type: 
  Country: None (occurrence: None)
  Receive Date: 20100526
  Receipt Date: 20100526
  Transmission Date: 20101027
  Serious: Yes (Hospitalization)
  Sender: FDA-Public Use
  Company Number: None

PATIENT
  Age: 55 Year
  Sex: Female
  Weight: 90.7194 kg

DRUGS (5)
  1. BODYSENSE VINEGAR + WATER DOUCHE [Suspect]
     Indication: FUNGAL INFECTION
     Dosage: 4.5 FL OZ (133ML) 2X PER MONTH VAGINA
     Route: 067
     Dates: start: 20100301
  2. BODYSENSE VINEGAR + WATER DOUCHE [Suspect]
     Indication: FUNGAL INFECTION
     Dosage: 4.5 FL OZ (133ML) 2X PER MONTH VAGINA
     Route: 067
     Dates: start: 20100320
  3. BODYSENSE VINEGAR + WATER DOUCHE [Suspect]
     Indication: FUNGAL INFECTION
     Dosage: 4.5 FL OZ (133ML) 2X PER MONTH VAGINA
     Route: 067
     Dates: start: 20100428
  4. PREDNISONE [Concomitant]
  5. FLUCONAZOLE [Concomitant]

REACTIONS (5)
  - BACTERIAL TEST POSITIVE [None]
  - FUNGAL TEST POSITIVE [None]
  - RED BLOOD CELLS URINE POSITIVE [None]
  - URINARY SEDIMENT PRESENT [None]
  - WHITE BLOOD CELLS URINE POSITIVE [None]
